FAERS Safety Report 12492474 (Version 1)
Quarter: 2016Q2

REPORT INFORMATION
  Report Type: Not Available
  Country: None (occurrence: US)
  Receive Date: 20160623
  Receipt Date: 20160623
  Transmission Date: 20160815
  Serious: Yes (Other)
  Sender: FDA-Public Use
  Company Number: US-AKORN-32259

PATIENT
  Sex: Female

DRUGS (1)
  1. AK-FLUOR [Suspect]
     Active Substance: FLUORESCEIN SODIUM

REACTIONS (4)
  - Mouth swelling [Recovered/Resolved]
  - Generalised erythema [None]
  - Pruritus [Recovered/Resolved]
  - Erythema [Recovered/Resolved]

NARRATIVE: CASE EVENT DATE: 20160531
